FAERS Safety Report 16632918 (Version 1)
Quarter: 2019Q3

REPORT INFORMATION
  Report Type: Spontaneous
  Country: US (occurrence: US)
  Receive Date: 20190725
  Receipt Date: 20190725
  Transmission Date: 20191004
  Serious: Yes (Other)
  Sender: FDA-Public Use
  Company Number: US-PFIZER INC-2018532416

PATIENT
  Age: 41 Year
  Sex: Male

DRUGS (2)
  1. LYRICA [Suspect]
     Active Substance: PREGABALIN
     Indication: TYPE 2 DIABETES MELLITUS
     Dosage: 100 MG, 3X/DAY (1 CAPSULE 3 TIMES DAILY)
     Route: 048
     Dates: start: 20190314
  2. LYRICA [Suspect]
     Active Substance: PREGABALIN
     Indication: OSTEOMYELITIS
     Dosage: 100 MG, 3X/DAY (1 CAPSULE 3 TIMES DAILY)
     Route: 048
     Dates: start: 20190716

REACTIONS (3)
  - Renal impairment [Unknown]
  - Off label use [Unknown]
  - Product use in unapproved indication [Unknown]
